FAERS Safety Report 15112040 (Version 3)
Quarter: 2019Q2

REPORT INFORMATION
  Report Type: Spontaneous
  Country: US (occurrence: US)
  Receive Date: 20180705
  Receipt Date: 20190610
  Transmission Date: 20190711
  Serious: Yes (Other)
  Sender: FDA-Public Use
  Company Number: US-ASTRAZENECA-2018SE84543

PATIENT
  Age: 13747 Day
  Sex: Female

DRUGS (12)
  1. NEXIUM [Suspect]
     Active Substance: ESOMEPRAZOLE MAGNESIUM
     Indication: GASTROOESOPHAGEAL REFLUX DISEASE
     Route: 048
     Dates: start: 20090601
  2. LEVAQUIN [Concomitant]
     Active Substance: LEVOFLOXACIN
  3. NEXIUM 24HR [Suspect]
     Active Substance: ESOMEPRAZOLE MAGNESIUM
     Indication: GASTROOESOPHAGEAL REFLUX DISEASE
     Route: 048
     Dates: start: 2008, end: 2012
  4. LASIX [Concomitant]
     Active Substance: FUROSEMIDE
  5. METRONIDAZOLE. [Concomitant]
     Active Substance: METRONIDAZOLE
  6. ASPIRIN. [Concomitant]
     Active Substance: ASPIRIN
  7. FOLIC ACID. [Concomitant]
     Active Substance: FOLIC ACID
  8. CLONIDINE. [Concomitant]
     Active Substance: CLONIDINE
  9. DULOXETINE. [Concomitant]
     Active Substance: DULOXETINE
  10. NEXIUM [Suspect]
     Active Substance: ESOMEPRAZOLE MAGNESIUM
     Indication: GASTROOESOPHAGEAL REFLUX DISEASE
     Route: 048
     Dates: start: 2008, end: 2012
  11. HYDRALAZINE [Concomitant]
     Active Substance: HYDRALAZINE HYDROCHLORIDE
  12. FLAGYL [Concomitant]
     Active Substance: METRONIDAZOLE\METRONIDAZOLE HYDROCHLORIDE

REACTIONS (7)
  - Renal failure [Unknown]
  - Renal impairment [Unknown]
  - Tubulointerstitial nephritis [Unknown]
  - Nephropathy [Unknown]
  - Chronic kidney disease [Unknown]
  - Acute kidney injury [Unknown]
  - End stage renal disease [Unknown]

NARRATIVE: CASE EVENT DATE: 20091121
